FAERS Safety Report 25261770 (Version 3)
Quarter: 2025Q2

REPORT INFORMATION
  Report Type: Spontaneous
  Country: US (occurrence: US)
  Receive Date: 20250502
  Receipt Date: 20250616
  Transmission Date: 20250716
  Serious: Yes (Other)
  Sender: ORGANON
  Company Number: US-ORGANON-O2504USA003007

PATIENT
  Age: 31 Year
  Sex: Female
  Weight: 112.49 kg

DRUGS (1)
  1. NEXPLANON [Suspect]
     Active Substance: ETONOGESTREL
     Indication: Contraception
     Route: 023
     Dates: start: 20230913

REACTIONS (6)
  - Pregnancy with implant contraceptive [Not Recovered/Not Resolved]
  - Unintended pregnancy [Not Recovered/Not Resolved]
  - Complication associated with device [Not Recovered/Not Resolved]
  - Product use issue [Unknown]
  - Product dose omission issue [Unknown]
  - Incorrect route of product administration [Unknown]

NARRATIVE: CASE EVENT DATE: 20230913
